FAERS Safety Report 18518382 (Version 1)
Quarter: 2020Q4

REPORT INFORMATION
  Report Type: Spontaneous
  Country: US (occurrence: US)
  Receive Date: 20201118
  Receipt Date: 20201118
  Transmission Date: 20210114
  Serious: Yes (Other)
  Sender: FDA-Public Use
  Company Number: US-SA-2020SA321968

PATIENT

DRUGS (5)
  1. TRIAMCINOLONE ACETONIDE. [Suspect]
     Active Substance: TRIAMCINOLONE ACETONIDE
     Indication: MACULAR FIBROSIS
     Dosage: UNK
     Route: 031
  2. FOSCARNET [Concomitant]
     Active Substance: FOSCARNET
     Dosage: 2.4 MG/0.1 CC
     Route: 031
  3. CEFTAZIDIME. [Concomitant]
     Active Substance: CEFTAZIDIME
     Dosage: 2.25 MG/0.1 CC
  4. VALACYCLOVIR [Concomitant]
     Active Substance: VALACYCLOVIR HYDROCHLORIDE
     Indication: NECROTISING RETINITIS
     Dosage: 1 G, TID
     Route: 048
  5. VANCOMYCIN [Concomitant]
     Active Substance: VANCOMYCIN
     Dosage: 1 MG/0.1 CC

REACTIONS (6)
  - Retinal vascular disorder [Not Recovered/Not Resolved]
  - Retinitis [Recovered/Resolved]
  - Blindness [Unknown]
  - Optic atrophy [Not Recovered/Not Resolved]
  - Eye infection toxoplasmal [Unknown]
  - Vitreous floaters [Recovered/Resolved]
